FAERS Safety Report 9461631 (Version 3)
Quarter: 2013Q4

REPORT INFORMATION
  Report Type: Spontaneous
  Country: US (occurrence: US)
  Receive Date: 20130816
  Receipt Date: 20131209
  Transmission Date: 20140711
  Serious: Yes (Hospitalization)
  Sender: FDA-Public Use
  Company Number: US-JNJFOC-20130804560

PATIENT
  Sex: Female
  Weight: 61.69 kg

DRUGS (10)
  1. DURAGESIC [Suspect]
     Indication: PAIN
     Dosage: THE PATIENT STARTED TREATMENT WITH FENTANYL IN 2004 OR 2005
     Route: 062
     Dates: start: 2005, end: 201303
  2. DURAGESIC [Suspect]
     Indication: PAIN
     Route: 062
     Dates: end: 201303
  3. DURAGESIC [Suspect]
     Indication: PAIN
     Route: 062
     Dates: start: 2013, end: 20130905
  4. FENTANYL TRANSDERMAL SYSTEM [Suspect]
     Indication: PRODUCT USED FOR UNKNOWN INDICATION
     Route: 062
  5. FENTANYL TRANSDERMAL SYSTEM [Suspect]
     Indication: PRODUCT USED FOR UNKNOWN INDICATION
     Route: 062
     Dates: start: 201303, end: 2013
  6. PHENERGAN [Concomitant]
     Indication: VOMITING
     Route: 065
     Dates: start: 2001
  7. PHENERGAN [Concomitant]
     Indication: NAUSEA
     Route: 065
     Dates: start: 2001
  8. CALTRATE [Concomitant]
     Route: 065
  9. IRON [Concomitant]
     Indication: MINERAL SUPPLEMENTATION
     Route: 042
  10. ACTIQ [Concomitant]
     Indication: BREAKTHROUGH PAIN
     Route: 065

REACTIONS (28)
  - Staphylococcal infection [Not Recovered/Not Resolved]
  - Staphylococcal infection [Recovered/Resolved]
  - Bedridden [Recovering/Resolving]
  - Malaise [Recovering/Resolving]
  - Feeling abnormal [Recovering/Resolving]
  - Neuralgia [Unknown]
  - Weight decreased [Not Recovered/Not Resolved]
  - Full blood count decreased [Recovered/Resolved]
  - Malnutrition [Recovered/Resolved]
  - Pain [Recovered/Resolved]
  - Hyperhidrosis [Recovering/Resolving]
  - Product adhesion issue [Unknown]
  - Drug dose omission [Not Recovered/Not Resolved]
  - Drug withdrawal syndrome [Not Recovered/Not Resolved]
  - Diarrhoea [Recovered/Resolved]
  - Vomiting [Recovered/Resolved]
  - Tremor [Recovered/Resolved]
  - Wrong technique in drug usage process [Not Recovered/Not Resolved]
  - Wrong technique in drug usage process [Not Recovered/Not Resolved]
  - Drug administered at inappropriate site [Not Recovered/Not Resolved]
  - Drug ineffective [Recovered/Resolved]
  - Weight increased [Not Recovered/Not Resolved]
  - Feeding tube complication [Not Recovered/Not Resolved]
  - Wrong technique in drug usage process [Unknown]
  - Wrong technique in drug usage process [Unknown]
  - Crying [Not Recovered/Not Resolved]
  - General physical health deterioration [Recovering/Resolving]
  - Liver function test abnormal [Unknown]
